FAERS Safety Report 13039824 (Version 1)
Quarter: 2016Q4

REPORT INFORMATION
  Report Type: Spontaneous
  Country: US (occurrence: US)
  Receive Date: 20161219
  Receipt Date: 20161219
  Transmission Date: 20170207
  Serious: Yes (Hospitalization, Other)
  Sender: FDA-Public Use
  Company Number: US-STANDARD HOMEOPATHIC COMPANY-1060977

PATIENT
  Age: 24 Month
  Sex: Female

DRUGS (1)
  1. HYLANDS BABY TINY COLD TABLETS [Suspect]
     Active Substance: HOMEOPATHICS
     Indication: RHINORRHOEA
     Route: 048
     Dates: start: 20161205, end: 20161205

REACTIONS (1)
  - Seizure [None]

NARRATIVE: CASE EVENT DATE: 20161205
